FAERS Safety Report 7004710-1 (Version None)
Quarter: 2010Q3

REPORT INFORMATION
  Report Type: 
  Country: None (occurrence: None)
  Receive Date: 20100921
  Receipt Date: 20100912
  Transmission Date: 20110219
  Serious: Yes (Death, Hospitalization)
  Sender: FDA-Public Use
  Company Number: IL-US-EMD SERONO, INC.-7017499

PATIENT
  Age: 74 Year
  Sex: Female

DRUGS (6)
  1. REBIF [Suspect]
     Indication: RELAPSING-REMITTING MULTIPLE SCLEROSIS
     Route: 058
     Dates: start: 20010101, end: 20100801
  2. NORMITEN [Concomitant]
  3. GLUCOPHAGE [Concomitant]
  4. AMILODIPINE [Concomitant]
  5. ENALADEX [Concomitant]
  6. ACTONEL [Concomitant]

REACTIONS (1)
  - CEREBROVASCULAR ACCIDENT [None]
